FAERS Safety Report 9387711 (Version 1)
Quarter: 2013Q3

REPORT INFORMATION
  Report Type: Spontaneous
  Country: JP (occurrence: None)
  Receive Date: 20130703
  Receipt Date: 20130703
  Transmission Date: 20140515
  Serious: Yes (Other)
  Sender: FDA-Public Use
  Company Number: AXC-2013-000285

PATIENT
  Age: 58 Year
  Sex: Male

DRUGS (1)
  1. URSODEOXYCHOLIC ACID [Suspect]
     Indication: ALCOHOLIC LIVER DISEASE
     Route: 048

REACTIONS (1)
  - Pneumonia [None]
